FAERS Safety Report 8182040-2 (Version None)
Quarter: 2012Q1

REPORT INFORMATION
  Report Type: 
  Country: None (occurrence: None)
  Receive Date: 20120302
  Receipt Date: 20120222
  Transmission Date: 20120608
  Serious: Yes (Hospitalization)
  Sender: FDA-Public Use
  Company Number: PHFR2012GB001310

PATIENT
  Age: 65 Year
  Sex: Female

DRUGS (3)
  1. ZOMETA [Suspect]
  2. LENALIDOMIDE [Suspect]
  3. CHEMOTHERAPEUTICS [Concomitant]
     Indication: MULTIPLE MYELOMA

REACTIONS (2)
  - ASCITES [None]
  - RENAL FAILURE ACUTE [None]
